FAERS Safety Report 8923963 (Version 1)
Quarter: 2012Q4

REPORT INFORMATION
  Report Type: 
  Country: US (occurrence: US)
  Receive Date: 20121126
  Receipt Date: 20121126
  Transmission Date: 20130627
  Serious: Yes (Other)
  Sender: FDA-Public Use
  Company Number: 2012SP003237

PATIENT
  Sex: Male

DRUGS (7)
  1. LUNESTA [Suspect]
     Indication: SLEEP DISORDER
     Route: 048
     Dates: start: 2009
  2. TOPROL [Concomitant]
     Indication: BLOOD PRESSURE
  3. LIPITOR [Concomitant]
     Indication: BLOOD CHOLESTEROL
  4. ATACAND [Concomitant]
     Indication: BLOOD PRESSURE
  5. ATACAND [Concomitant]
     Indication: CARDIAC VALVE DISEASE
  6. PANTOPRAZOLE [Concomitant]
     Indication: GASTROOESOPHAGEAL REFLUX DISEASE
  7. XARELTO [Suspect]
     Indication: ANTICOAGULANT THERAPY
     Dates: start: 201211

REACTIONS (2)
  - Atrial fibrillation [Not Recovered/Not Resolved]
  - Insomnia [Not Recovered/Not Resolved]
